FAERS Safety Report 5597664-6 (Version None)
Quarter: 2008Q1

REPORT INFORMATION
  Report Type: 
  Country: None (occurrence: None)
  Receive Date: 20080121
  Receipt Date: 20080109
  Transmission Date: 20080703
  Serious: Yes (Other)
  Sender: FDA-Public Use
  Company Number: US-ELI_LILLY_AND_COMPANY-US200801001881

PATIENT
  Sex: Female

DRUGS (1)
  1. CYMBALTA [Suspect]
     Indication: BIPOLAR I DISORDER
     Dosage: 1 D/F, UNK

REACTIONS (3)
  - ABNORMAL BEHAVIOUR [None]
  - GASTRIC OPERATION [None]
  - PHARMACEUTICAL PRODUCT COMPLAINT [None]
